FAERS Safety Report 9528707 (Version 1)
Quarter: 2013Q1

REPORT INFORMATION
  Report Type: Spontaneous
  Country: US (occurrence: None)
  Receive Date: 20130320
  Receipt Date: 20130320
  Transmission Date: 20140127
  Serious: Yes (Death)
  Sender: FDA-Public Use
  Company Number: 075287

PATIENT
  Age: 19 Year
  Sex: Male

DRUGS (2)
  1. ALPRAZOLAM [Suspect]
     Dosage: (ORAL ) THERAPY DATES (TO NOT CONTINUING)
     Route: 048
  2. OXYMORPHONE [Suspect]
     Dosage: (ORAL ) THERAPY DATES (TO NOT CONTINUING)
     Route: 048

REACTIONS (2)
  - Cardio-respiratory arrest [None]
  - Accidental poisoning [None]
